FAERS Safety Report 9029652 (Version 1)
Quarter: 2013Q1

REPORT INFORMATION
  Report Type: Spontaneous
  Country: BR (occurrence: BR)
  Receive Date: 20130125
  Receipt Date: 20130125
  Transmission Date: 20140127
  Serious: Yes (Other)
  Sender: FDA-Public Use
  Company Number: PHHY2013BR005411

PATIENT
  Age: 9 None
  Sex: Male
  Weight: 20 kg

DRUGS (9)
  1. EXJADE [Suspect]
     Indication: SICKLE CELL ANAEMIA
     Dosage: 1 DF, UNK
     Route: 048
  2. SODIUM VALPROATE [Concomitant]
  3. CAPTOPRIL [Concomitant]
  4. DOMPERIDONE [Concomitant]
  5. RANITIDINE [Concomitant]
  6. CLENIL [Concomitant]
  7. AMITRIPTYLINE [Concomitant]
  8. PEN-V [Concomitant]
  9. BLOOD TRANSFUSION, AUXILIARY PRODUCTS [Concomitant]

REACTIONS (2)
  - Cerebrovascular accident [Unknown]
  - Serum ferritin increased [Unknown]
